FAERS Safety Report 10133632 (Version 1)
Quarter: 2014Q2

REPORT INFORMATION
  Report Type: Spontaneous
  Country: JP (occurrence: JP)
  Receive Date: 20140428
  Receipt Date: 20140428
  Transmission Date: 20141212
  Serious: Yes (Other)
  Sender: FDA-Public Use
  Company Number: JP-GLAXOSMITHKLINE-B0989031A

PATIENT
  Sex: Male

DRUGS (10)
  1. HYCAMTIN [Suspect]
     Indication: OSTEOSARCOMA
     Route: 042
     Dates: start: 20100308, end: 20100312
  2. CYCLOPHOSPHAMIDE [Suspect]
     Indication: OSTEOSARCOMA
     Route: 042
     Dates: start: 20100308, end: 20100312
  3. KYTRIL [Concomitant]
     Indication: NAUSEA
     Dosage: 6MG PER DAY
     Route: 042
     Dates: start: 20100308, end: 20100312
  4. OXINORM [Concomitant]
     Indication: PRODUCT USED FOR UNKNOWN INDICATION
     Route: 065
  5. MYCOSYST [Concomitant]
     Indication: PRODUCT USED FOR UNKNOWN INDICATION
     Dosage: 100MG PER DAY
     Route: 065
  6. DUROTEP [Concomitant]
     Indication: PRODUCT USED FOR UNKNOWN INDICATION
     Route: 065
  7. BACTRAMIN [Concomitant]
     Indication: PRODUCT USED FOR UNKNOWN INDICATION
  8. SLOW-K [Concomitant]
     Indication: PRODUCT USED FOR UNKNOWN INDICATION
     Dosage: 3600MG PER DAY
  9. ONEALFA [Concomitant]
     Indication: PRODUCT USED FOR UNKNOWN INDICATION
     Dosage: .5MCG PER DAY
     Route: 065
  10. FOLIAMIN [Concomitant]
     Indication: PRODUCT USED FOR UNKNOWN INDICATION
     Dosage: 15MG PER DAY

REACTIONS (2)
  - Renal disorder [Unknown]
  - Blood creatinine increased [Unknown]
